FAERS Safety Report 5908884-2 (Version None)
Quarter: 2008Q4

REPORT INFORMATION
  Report Type: 
  Country: None (occurrence: None)
  Receive Date: 20081006
  Receipt Date: 20081001
  Transmission Date: 20090506
  Serious: Yes (Death)
  Sender: FDA-Public Use
  Company Number: JP-AVENTIS-200812889JP

PATIENT
  Age: 80 Year
  Sex: Male

DRUGS (3)
  1. TAXOTERE [Suspect]
     Indication: OESOPHAGEAL SQUAMOUS CELL CARCINOMA STAGE III
     Route: 041
     Dates: start: 20080220
  2. TAXOTERE [Suspect]
     Route: 041
     Dates: start: 20080317
  3. RADIOTHERAPY [Concomitant]
     Indication: OESOPHAGEAL SQUAMOUS CELL CARCINOMA STAGE III
     Dosage: DOSE: 63GY/30FR
     Dates: start: 20080317

REACTIONS (1)
  - INTERSTITIAL LUNG DISEASE [None]
